FAERS Safety Report 8459662-4 (Version None)
Quarter: 2012Q2

REPORT INFORMATION
  Report Type: 
  Country: None (occurrence: None)
  Receive Date: 20120622
  Receipt Date: 20120615
  Transmission Date: 20120825
  Serious: Yes (Hospitalization, Other)
  Sender: FDA-Public Use
  Company Number: US-JNJFOC-20110608964

PATIENT
  Age: 62 Year
  Sex: Female

DRUGS (11)
  1. REMICADE [Suspect]
     Indication: PRODUCT USED FOR UNKNOWN INDICATION
     Route: 042
     Dates: start: 20090629
  2. ASACOL [Concomitant]
     Dates: start: 20081130, end: 20090515
  3. REMICADE [Suspect]
     Route: 042
     Dates: start: 20090818
  4. REMICADE [Suspect]
     Route: 042
     Dates: start: 20090422
  5. METHYLPREDNISOLONE [Concomitant]
  6. REMICADE [Suspect]
     Route: 042
     Dates: start: 20090311
  7. PREDNISONE TAB [Concomitant]
     Dates: start: 20081213, end: 20090331
  8. AZATHIOPRINE [Concomitant]
     Dates: start: 20090108, end: 20090526
  9. REMICADE [Suspect]
     Route: 042
     Dates: start: 20090325
  10. REMICADE [Suspect]
     Route: 042
     Dates: start: 20091014
  11. REMICADE [Suspect]
     Route: 042
     Dates: start: 20091208

REACTIONS (2)
  - PROGRESSIVE MULTIFOCAL LEUKOENCEPHALOPATHY [None]
  - MULTIPLE SCLEROSIS [None]
